FAERS Safety Report 4389500-0 (Version None)
Quarter: 2004Q3

REPORT INFORMATION
  Report Type: 
  Country: None (occurrence: None)
  Receive Date: 20040702
  Receipt Date: 20040527
  Transmission Date: 20050211
  Serious: Yes (Death)
  Sender: FDA-Public Use
  Company Number: JP-GLAXOSMITHKLINE-B0334181A

PATIENT
  Age: 55 Year
  Sex: Male
  Weight: 89 kg

DRUGS (11)
  1. PAXIL [Suspect]
     Indication: DEPRESSION
     Route: 048
     Dates: start: 20040424, end: 20040530
  2. MS CONTIN [Suspect]
     Indication: ANTITUSSIVE THERAPY
     Dosage: 10MG TWICE PER DAY
     Route: 048
     Dates: start: 20040310, end: 20040517
  3. DECADRON [Suspect]
     Dosage: 4MG PER DAY
     Route: 048
     Dates: start: 20040513, end: 20040605
  4. NOVAMIN [Concomitant]
     Indication: ANTIEMETIC SUPPORTIVE CARE
     Dosage: 15MG PER DAY
     Route: 048
     Dates: start: 20040310, end: 20040530
  5. BAYASPIRIN [Concomitant]
     Indication: THROMBOSIS PROPHYLAXIS
     Dosage: 100MG PER DAY
     Route: 048
     Dates: start: 20030901, end: 20040605
  6. PRONON [Concomitant]
     Indication: ATRIAL FIBRILLATION
     Dosage: 300MG PER DAY
     Route: 048
     Dates: start: 20030901, end: 20040605
  7. MOBIC [Concomitant]
     Indication: BACK PAIN
     Dosage: 15MG PER DAY
     Route: 048
     Dates: start: 20030901, end: 20040605
  8. GASTER D [Concomitant]
     Indication: GASTRITIS
     Dosage: 20MG PER DAY
     Route: 048
     Dates: start: 20030901, end: 20040605
  9. MAGLAX [Concomitant]
     Indication: CONSTIPATION
     Dosage: 990MG PER DAY
     Route: 048
     Dates: start: 20030901, end: 20040605
  10. MEROPEN [Concomitant]
     Indication: PNEUMONIA
     Dosage: 1G PER DAY
     Route: 042
     Dates: start: 20040508, end: 20040531
  11. GLYCEROL 2.6% [Concomitant]
     Dosage: 400ML PER DAY
     Route: 042
     Dates: start: 20040513, end: 20040605

REACTIONS (7)
  - CONDITION AGGRAVATED [None]
  - DELIRIUM [None]
  - HALLUCINATION [None]
  - INSOMNIA [None]
  - LUNG NEOPLASM MALIGNANT [None]
  - RESTLESSNESS [None]
  - SOMNOLENCE [None]
